FAERS Safety Report 10065457 (Version 1)
Quarter: 2014Q2

REPORT INFORMATION
  Report Type: Spontaneous
  Country: US (occurrence: US)
  Receive Date: 20140408
  Receipt Date: 20140408
  Transmission Date: 20141212
  Serious: Yes (Other)
  Sender: FDA-Public Use
  Company Number: US-PFIZER INC-2014095787

PATIENT
  Sex: 0

DRUGS (1)
  1. NEURONTIN [Suspect]
     Dosage: 100 MG, SINGLE
     Dates: start: 2014, end: 2014

REACTIONS (2)
  - Abasia [Unknown]
  - Tremor [Unknown]
